FAERS Safety Report 4709931-6 (Version None)
Quarter: 2005Q3

REPORT INFORMATION
  Report Type: 
  Country: None (occurrence: None)
  Receive Date: 20050708
  Receipt Date: 20050610
  Transmission Date: 20060218
  Serious: Yes (Other)
  Sender: FDA-Public Use
  Company Number: JP-ROCHE-407233

PATIENT
  Age: 58 Year
  Sex: Male
  Weight: 87 kg

DRUGS (7)
  1. HORIZON [Suspect]
     Indication: DRUG USE FOR UNKNOWN INDICATION
     Dosage: TAKEN 1 HOUR AND 30 MINUTES PRIOR TO SURGERY.
     Route: 048
     Dates: start: 20020913, end: 20020913
  2. SEVOFLURANE [Suspect]
     Indication: SEDATION
     Route: 055
     Dates: start: 20020913
  3. DIPRIVAN [Suspect]
     Indication: SEDATION
     Route: 055
     Dates: start: 20020913
  4. CARBOCAIN [Suspect]
     Indication: SEDATION
     Route: 008
     Dates: start: 20020913
  5. GLIBENCLAMIDE [Concomitant]
  6. FENTANYL CITRATE [Concomitant]
     Indication: SEDATION
     Route: 008
     Dates: start: 20020913
  7. BUPIVACAINE HCL [Concomitant]
     Dates: start: 20020913

REACTIONS (10)
  - ANAESTHETIC COMPLICATION NEUROLOGICAL [None]
  - BLOOD PRESSURE DECREASED [None]
  - BLOOD PRESSURE SYSTOLIC DECREASED [None]
  - DYSPNOEA [None]
  - HYPOGLOSSAL NERVE DISORDER [None]
  - OXYGEN SATURATION DECREASED [None]
  - PARALYSIS [None]
  - POST PROCEDURAL COMPLICATION [None]
  - SPEECH DISORDER [None]
  - TONGUE PARALYSIS [None]
